FAERS Safety Report 14110655 (Version 2)
Quarter: 2017Q4

REPORT INFORMATION
  Report Type: Spontaneous
  Country: US (occurrence: US)
  Receive Date: 20171020
  Receipt Date: 20171129
  Transmission Date: 20180321
  Serious: Yes (Other)
  Sender: FDA-Public Use
  Company Number: PHEH2017US033444

PATIENT
  Sex: Male

DRUGS (1)
  1. TRAVATAN Z [Suspect]
     Active Substance: TRAVOPROST
     Indication: PRODUCT USED FOR UNKNOWN INDICATION
     Dosage: 1 GTT, QD
     Route: 047

REACTIONS (8)
  - Speech disorder [Unknown]
  - Wrong technique in product usage process [Unknown]
  - Confusional state [Unknown]
  - Memory impairment [Unknown]
  - Product dropper issue [Unknown]
  - Cerebrovascular accident [Unknown]
  - Diplopia [Unknown]
  - Product label issue [Unknown]
